FAERS Safety Report 21146912 (Version 1)
Quarter: 2022Q3

REPORT INFORMATION
  Report Type: Report from Study
  Country: IT (occurrence: IT)
  Receive Date: 20220729
  Receipt Date: 20220729
  Transmission Date: 20221026
  Serious: Yes (Other)
  Sender: FDA-Public Use
  Company Number: IT-MINISAL02-875283

PATIENT
  Age: 17 Year
  Sex: Male
  Weight: 68 kg

DRUGS (4)
  1. IFOSFAMIDE [Suspect]
     Active Substance: IFOSFAMIDE
     Indication: Hodgkin^s disease
     Dosage: 3550 MG, QD (HOLOXAN POWDER FOR SOLUTION FOR INFUSION)
     Route: 042
     Dates: start: 20220311, end: 20220314
  2. GEMCITABINE HYDROCHLORIDE [Suspect]
     Active Substance: GEMCITABINE HYDROCHLORIDE
     Indication: Hodgkin^s disease
     Dosage: 1420 MG
     Route: 042
     Dates: start: 20220311, end: 20220311
  3. VINORELBINE TARTRATE [Suspect]
     Active Substance: VINORELBINE TARTRATE
     Indication: Hodgkin^s disease
     Dosage: 35.5 MG
     Route: 042
     Dates: start: 20220311, end: 20220311
  4. ZOFRAN [Concomitant]
     Active Substance: ONDANSETRON HYDROCHLORIDE
     Indication: Prophylaxis of nausea and vomiting
     Dosage: 8 MG
     Route: 042
     Dates: start: 20220311, end: 20220311

REACTIONS (6)
  - C-reactive protein increased [Recovered/Resolved]
  - Pyrexia [Recovered/Resolved]
  - Nausea [Recovered/Resolved]
  - Pancytopenia [Recovered/Resolved]
  - Alanine aminotransferase increased [Recovered/Resolved]
  - Vomiting [Recovered/Resolved]

NARRATIVE: CASE EVENT DATE: 20220321
